FAERS Safety Report 18663490 (Version 22)
Quarter: 2023Q4

REPORT INFORMATION
  Report Type: Report from Study
  Country: CN (occurrence: CN)
  Receive Date: 20201224
  Receipt Date: 20231031
  Transmission Date: 20240109
  Serious: Yes (Death, Hospitalization, Other)
  Sender: FDA-Public Use
  Company Number: CN-TAKEDA-2020TUS059871

PATIENT
  Age: 61 Year
  Sex: Male
  Weight: 65.7 kg

DRUGS (27)
  1. IXAZOMIB [Suspect]
     Active Substance: IXAZOMIB
     Indication: Plasma cell myeloma
     Dosage: 4 MILLIGRAM, 1/WEEK
     Route: 048
     Dates: start: 20200707
  2. DEXAMETHASONE [Suspect]
     Active Substance: DEXAMETHASONE
     Indication: Plasma cell myeloma
     Dosage: 20 MILLIGRAM
     Route: 048
     Dates: start: 20200707, end: 20200913
  3. DEXAMETHASONE [Suspect]
     Active Substance: DEXAMETHASONE
     Dosage: 15 MILLIGRAM
     Route: 048
     Dates: start: 20200914, end: 202112
  4. LENALIDOMIDE [Suspect]
     Active Substance: LENALIDOMIDE
     Indication: Plasma cell myeloma
     Dosage: 25 MILLIGRAM, QOD
     Route: 048
     Dates: start: 20200707, end: 202102
  5. CYCLOPHOSPHAMIDE [Suspect]
     Active Substance: CYCLOPHOSPHAMIDE
     Indication: Product used for unknown indication
     Dosage: UNK
     Route: 065
  6. ETOPOSIDE [Concomitant]
     Active Substance: ETOPOSIDE
     Indication: Plasma cell myeloma
     Dosage: 50 MILLIGRAM, QD
     Route: 048
     Dates: start: 20200914, end: 20200923
  7. ALENDRONATE SODIUM\CHOLECALCIFEROL [Concomitant]
     Active Substance: ALENDRONATE SODIUM\CHOLECALCIFEROL
     Indication: Osteoporosis
     Dosage: 70 MILLIGRAM, 1/WEEK
     Route: 048
     Dates: start: 2018, end: 202112
  8. CALCIUM CARBONATE\CHOLECALCIFEROL [Concomitant]
     Active Substance: CALCIUM CARBONATE\CHOLECALCIFEROL
     Indication: Osteoporosis
     Dosage: 600 MILLIGRAM, QD
     Route: 048
     Dates: start: 2018, end: 202011
  9. Demethylcantharidin [Concomitant]
     Indication: Plasma cell myeloma
     Dosage: 0.25 MICROGRAM, BID
     Route: 048
     Dates: start: 2018
  10. Demethylcantharidin [Concomitant]
     Indication: Osteoporosis
     Dosage: 10 MILLIGRAM, TID
     Route: 048
     Dates: start: 20200914, end: 202010
  11. ASPIRIN [Concomitant]
     Active Substance: ASPIRIN
     Indication: Prophylaxis
     Dosage: 0.1 GRAM, QD
     Route: 048
     Dates: start: 20201104, end: 202011
  12. ASPIRIN [Concomitant]
     Active Substance: ASPIRIN
     Indication: Coronary artery disease
  13. ACARBOSE [Concomitant]
     Active Substance: ACARBOSE
     Indication: Diabetes mellitus
     Dosage: UNK
     Route: 048
     Dates: start: 2000, end: 2017
  14. ACARBOSE [Concomitant]
     Active Substance: ACARBOSE
     Dosage: 100 MILLIGRAM, TID
     Route: 048
     Dates: start: 2017, end: 202112
  15. METFORMIN HYDROCHLORIDE [Concomitant]
     Active Substance: METFORMIN HYDROCHLORIDE
     Indication: Diabetes mellitus
     Dosage: 0.5 GRAM
     Route: 048
  16. CALCITRIOL [Concomitant]
     Active Substance: CALCITRIOL
     Indication: Osteoporosis
     Dosage: 0.25 MICROGRAM
     Route: 048
     Dates: start: 2018
  17. CALCITRIOL [Concomitant]
     Active Substance: CALCITRIOL
     Dosage: 0.25 MICROGRAM, BID
     Route: 048
     Dates: start: 2018, end: 202112
  18. GLIQUIDONE [Concomitant]
     Active Substance: GLIQUIDONE
     Indication: Diabetes mellitus
     Dosage: 30 MILLIGRAM
     Route: 048
  19. Kang ai [Concomitant]
     Indication: Prophylaxis
     Dosage: 40 MILLILITER, QD
     Route: 042
     Dates: start: 20201104, end: 202011
  20. ATORVASTATIN CALCIUM [Concomitant]
     Active Substance: ATORVASTATIN CALCIUM
     Indication: Coronary artery disease
     Dosage: 20 MILLIGRAM, QD
     Route: 048
     Dates: start: 20201104, end: 202112
  21. HEPARIN SODIUM [Concomitant]
     Active Substance: HEPARIN SODIUM
     Indication: Coronary artery disease
     Dosage: 4250 INTERNATIONAL UNIT, QD
     Route: 058
     Dates: start: 20201104, end: 202011
  22. METOPROLOL TARTRATE [Concomitant]
     Active Substance: METOPROLOL TARTRATE
     Indication: Coronary artery disease
     Dosage: 12.5 MILLIGRAM, BID
     Route: 048
     Dates: start: 20201104, end: 202011
  23. EZETIMIBE [Concomitant]
     Active Substance: EZETIMIBE
     Indication: Coronary artery disease
     Dosage: 10 MILLIGRAM, QD
     Route: 048
     Dates: start: 20201104, end: 202011
  24. OPRELVEKIN [Concomitant]
     Active Substance: OPRELVEKIN
     Indication: Prophylaxis
     Dosage: 3 MILLIGRAM, QD
     Route: 058
     Dates: start: 20201104, end: 202011
  25. SPIRONOLACTONE [Concomitant]
     Active Substance: SPIRONOLACTONE
     Indication: Diuretic therapy
     Dosage: 20 MILLIGRAM, BID
     Route: 048
     Dates: start: 20201104, end: 202011
  26. FUROSEMIDE [Concomitant]
     Active Substance: FUROSEMIDE
     Indication: Diuretic therapy
     Dosage: 20 MILLIGRAM, QD
     Route: 048
     Dates: start: 20201104, end: 202011
  27. CARBAZOCHROME SODIUM SULFONATE [Concomitant]
     Active Substance: CARBAZOCHROME SODIUM SULFONATE
     Indication: Thrombocytopenia
     Dosage: 80 MILLIGRAM, QD
     Route: 042
     Dates: start: 20201104, end: 202011

REACTIONS (4)
  - Respiratory failure [Fatal]
  - Ludwig angina [Not Recovered/Not Resolved]
  - Soft tissue infection [Recovering/Resolving]
  - White blood cell count decreased [Recovered/Resolved]

NARRATIVE: CASE EVENT DATE: 20200914
